FAERS Safety Report 16882431 (Version 1)
Quarter: 2019Q4

REPORT INFORMATION
  Report Type: Spontaneous
  Country: US (occurrence: US)
  Receive Date: 20191003
  Receipt Date: 20191003
  Transmission Date: 20200122
  Serious: No
  Sender: FDA-Public Use
  Company Number: US-JAZZ-2016-US-021742

PATIENT
  Sex: Female

DRUGS (30)
  1. CALCIUM [Concomitant]
     Active Substance: CALCIUM
  2. NORCO [Concomitant]
     Active Substance: ACETAMINOPHEN\HYDROCODONE BITARTRATE
  3. TOPAMAX [Concomitant]
     Active Substance: TOPIRAMATE
  4. ONDANSETRON [Concomitant]
     Active Substance: ONDANSETRON
  5. ABILIFY [Concomitant]
     Active Substance: ARIPIPRAZOLE
  6. NAPROXEN. [Concomitant]
     Active Substance: NAPROXEN
  7. BOTOX COSMETIC [Concomitant]
     Active Substance: ONABOTULINUMTOXINA
  8. PRISTIQ EXTENDED-RELEASE [Concomitant]
     Active Substance: DESVENLAFAXINE SUCCINATE
  9. VITAMIN B [Concomitant]
     Active Substance: VITAMIN B
  10. FLONASE ALLERGY RELIEF [Concomitant]
     Active Substance: FLUTICASONE PROPIONATE
  11. CARAFATE [Concomitant]
     Active Substance: SUCRALFATE
  12. GABAPENTIN. [Concomitant]
     Active Substance: GABAPENTIN
  13. RITALIN [Concomitant]
     Active Substance: METHYLPHENIDATE HYDROCHLORIDE
  14. DICLOFENAC [Concomitant]
     Active Substance: DICLOFENAC
  15. ALBUTEROL SULFATE. [Concomitant]
     Active Substance: ALBUTEROL SULFATE
  16. IPRATROPIUM BROMIDE. [Concomitant]
     Active Substance: IPRATROPIUM BROMIDE
  17. PROMETHAZINE [Concomitant]
     Active Substance: PROMETHAZINE HYDROCHLORIDE
  18. DEXAMFETAMINE [Concomitant]
     Active Substance: DEXTROAMPHETAMINE
  19. MODAFINIL. [Concomitant]
     Active Substance: MODAFINIL
  20. QVAR [Concomitant]
     Active Substance: BECLOMETHASONE DIPROPIONATE
  21. DIPHENHYDRAMINE HYDROCHLORIDE. [Concomitant]
     Active Substance: DIPHENHYDRAMINE HYDROCHLORIDE
  22. ESOMEPRAZOLE MAGNESIUM. [Concomitant]
     Active Substance: ESOMEPRAZOLE MAGNESIUM
  23. ZOMIG [Concomitant]
     Active Substance: ZOLMITRIPTAN
  24. XYREM [Suspect]
     Active Substance: SODIUM OXYBATE
     Indication: NARCOLEPSY
     Dosage: 2.25 G, BID
     Route: 048
     Dates: start: 201605, end: 201606
  25. DOCUSATE SODIUM. [Concomitant]
     Active Substance: DOCUSATE SODIUM
  26. COLECALCIFEROL [Concomitant]
     Active Substance: CHOLECALCIFEROL
  27. SEROQUEL [Concomitant]
     Active Substance: QUETIAPINE FUMARATE
  28. XYREM [Suspect]
     Active Substance: SODIUM OXYBATE
     Dosage: 3 G, BID
     Route: 048
     Dates: start: 201606, end: 201606
  29. PSEUDOEPHEDRINE. [Concomitant]
     Active Substance: PSEUDOEPHEDRINE HYDROCHLORIDE
  30. ALPRAZOLAM. [Concomitant]
     Active Substance: ALPRAZOLAM

REACTIONS (1)
  - Migraine [Recovering/Resolving]

NARRATIVE: CASE EVENT DATE: 2016
